FAERS Safety Report 10734256 (Version 2)
Quarter: 2015Q1

REPORT INFORMATION
  Report Type: Spontaneous
  Country: FR (occurrence: FR)
  Receive Date: 20150123
  Receipt Date: 20150306
  Transmission Date: 20150721
  Serious: Yes (Hospitalization)
  Sender: FDA-Public Use
  Company Number: FR-ELI_LILLY_AND_COMPANY-FR201501003982

PATIENT
  Age: 53 Year
  Sex: Male

DRUGS (1)
  1. PROZAC [Suspect]
     Active Substance: FLUOXETINE HYDROCHLORIDE
     Indication: DEPRESSION
     Dosage: UNK, UNKNOWN
     Route: 048
     Dates: start: 201409, end: 201411

REACTIONS (12)
  - Arthritis [Recovering/Resolving]
  - Neck pain [Recovering/Resolving]
  - Oedema [Recovering/Resolving]
  - Arthralgia [Recovering/Resolving]
  - Lung infiltration [Recovering/Resolving]
  - Skin mass [Recovering/Resolving]
  - Lymphadenopathy [Recovering/Resolving]
  - General physical health deterioration [Recovering/Resolving]
  - Pain [Recovering/Resolving]
  - Asthenia [Recovering/Resolving]
  - Lymphadenopathy mediastinal [Recovering/Resolving]
  - Gastric polyps [Recovering/Resolving]

NARRATIVE: CASE EVENT DATE: 20141018
